FAERS Safety Report 8082112 (Version 4)
Quarter: 2024Q4

REPORT INFORMATION
  Report Type: Spontaneous
  Country: FR (occurrence: FR)
  Receive Date: 20110809
  Receipt Date: 20241224
  Transmission Date: 20250114
  Serious: Yes (Death)
  Sender: PFIZER
  Company Number: FR-PFIZER INC-2011178071

PATIENT
  Age: 58 Year
  Sex: Male

DRUGS (4)
  1. VFEND [Interacting]
     Active Substance: VORICONAZOLE
     Dosage: 200 MG, 2X/DAY
     Route: 048
  2. RIFABUTIN [Interacting]
     Active Substance: RIFABUTIN
     Dosage: 150 MG, 2X/DAY
     Dates: start: 200801
  3. CLARITHROMYCIN [Concomitant]
     Active Substance: CLARITHROMYCIN
     Dosage: 1 G/DAY
     Dates: start: 200801
  4. CIPROFLOXACIN [Concomitant]
     Active Substance: CIPROFLOXACIN
     Dosage: 1 G, UNK
     Dates: start: 200801

REACTIONS (2)
  - Drug ineffective [Fatal]
  - Drug interaction [Fatal]

NARRATIVE: CASE EVENT DATE: 20080601
